FAERS Safety Report 16867646 (Version 2)
Quarter: 2019Q3

REPORT INFORMATION
  Report Type: Spontaneous
  Country: US (occurrence: US)
  Receive Date: 20190930
  Receipt Date: 20190930
  Transmission Date: 20191005
  Serious: Yes (Other)
  Sender: FDA-Public Use
  Company Number: US-PFIZER INC-2019405853

PATIENT
  Age: 6 Year
  Sex: Male
  Weight: 21 kg

DRUGS (8)
  1. SODIUM NITROPRUSSIDE. [Suspect]
     Active Substance: SODIUM NITROPRUSSIDE
     Dosage: UNK
     Dates: start: 19751207
  2. DIAZOXIDE [Concomitant]
     Active Substance: DIAZOXIDE
     Indication: HYPERTENSION
     Dosage: UNK
     Dates: start: 197511
  3. PROPRANOLOL HYDROCHLORIDE. [Concomitant]
     Active Substance: PROPRANOLOL HYDROCHLORIDE
     Indication: HYPERTENSION
     Dosage: UNK
     Dates: start: 197511
  4. MINOXIDIL. [Concomitant]
     Active Substance: MINOXIDIL
     Indication: HYPERTENSION
     Dosage: UNK
     Route: 048
  5. FUROSEMIDE. [Concomitant]
     Active Substance: FUROSEMIDE
     Indication: HYPERTENSION
     Dosage: UNK
     Dates: start: 197511
  6. GUANETHIDINE SULFATE. [Concomitant]
     Active Substance: GUANETHIDINE SULFATE
     Indication: HYPERTENSION
     Dosage: UNK
     Dates: start: 197511
  7. SODIUM NITROPRUSSIDE. [Suspect]
     Active Substance: SODIUM NITROPRUSSIDE
     Indication: HYPERTENSION
     Dosage: 1.0 TO 5.5 UG/KG/MIN
     Dates: start: 19751117, end: 19751128
  8. METHYLDOPA. [Concomitant]
     Active Substance: METHYLDOPA
     Indication: HYPERTENSION
     Dosage: UNK
     Dates: start: 197511

REACTIONS (3)
  - Hallucination [Unknown]
  - Vomiting [Unknown]
  - Toxicity to various agents [Recovered/Resolved]
